FAERS Safety Report 22957976 (Version 6)
Quarter: 2023Q4

REPORT INFORMATION
  Report Type: Report from Study
  Country: US (occurrence: US)
  Receive Date: 20230919
  Receipt Date: 20231219
  Transmission Date: 20240110
  Serious: Yes (Other)
  Sender: FDA-Public Use
  Company Number: US-EXELIXIS-CABO-23068159

PATIENT
  Age: 73 Year
  Sex: Male

DRUGS (16)
  1. CABOMETYX [Suspect]
     Active Substance: CABOZANTINIB S-MALATE
     Indication: Renal cell carcinoma
     Dosage: 40 MG
     Dates: start: 202201
  2. CABOMETYX [Suspect]
     Active Substance: CABOZANTINIB S-MALATE
     Dosage: 20 MG, QD
     Dates: end: 20230619
  3. CABOMETYX [Suspect]
     Active Substance: CABOZANTINIB S-MALATE
     Dosage: 20 MG, QD
     Dates: start: 20230810, end: 20231031
  4. OPDIVO [Suspect]
     Active Substance: NIVOLUMAB
     Indication: Renal cell carcinoma
     Dosage: UNK, Q2WEEKS
     Dates: start: 202201
  5. LISINOPRIL [Concomitant]
     Active Substance: LISINOPRIL
  6. NORVASC [Concomitant]
     Active Substance: AMLODIPINE BESYLATE
  7. BUPROPION [Concomitant]
     Active Substance: BUPROPION
  8. GABAPENTIN [Concomitant]
     Active Substance: GABAPENTIN
  9. IPRATROPIUM [Concomitant]
     Active Substance: IPRATROPIUM
  10. NASACORT [Concomitant]
     Active Substance: TRIAMCINOLONE ACETONIDE
  11. VITAMINS [Concomitant]
     Active Substance: VITAMINS
  12. PRILOSEC [Concomitant]
     Active Substance: OMEPRAZOLE MAGNESIUM
  13. PRAVASTATIN [Concomitant]
     Active Substance: PRAVASTATIN
  14. FINASTERIDE [Concomitant]
     Active Substance: FINASTERIDE
  15. RAPAFLO [Concomitant]
     Active Substance: SILODOSIN
  16. MIRALAX [Concomitant]
     Active Substance: POLYETHYLENE GLYCOL 3350

REACTIONS (11)
  - Neuropathy peripheral [Unknown]
  - Taste disorder [Not Recovered/Not Resolved]
  - Rash erythematous [Recovered/Resolved]
  - Weight decreased [Recovered/Resolved]
  - Constipation [Recovering/Resolving]
  - Fatigue [Recovered/Resolved]
  - Muscle spasms [Unknown]
  - Rash [Not Recovered/Not Resolved]
  - Tooth disorder [Unknown]
  - Alveolar osteitis [Recovered/Resolved]
  - Impaired healing [Not Recovered/Not Resolved]

NARRATIVE: CASE EVENT DATE: 20230619
